FAERS Safety Report 10797637 (Version 1)
Quarter: 2015Q1

REPORT INFORMATION
  Report Type: Spontaneous
  Country: US (occurrence: US)
  Receive Date: 20150216
  Receipt Date: 20150216
  Transmission Date: 20150721
  Serious: No
  Sender: FDA-Public Use
  Company Number: US-ASTRAZENECA-2014SE24386

PATIENT
  Sex: Male

DRUGS (4)
  1. CASODEX [Suspect]
     Active Substance: BICALUTAMIDE
     Indication: PROSTATE CANCER
     Route: 048
     Dates: start: 2014
  2. INDERAL [Concomitant]
     Active Substance: PROPRANOLOL HYDROCHLORIDE
     Indication: HEART RATE IRREGULAR
     Dosage: 20 MG. DAILY
  3. RAPAFLOW [Concomitant]
     Indication: DYSURIA
     Dosage: 8 MG. DAILY
     Dates: start: 201402
  4. ALPLENZIN [Concomitant]
     Indication: ANTIDEPRESSANT THERAPY
     Dosage: 522 MG. DAILY

REACTIONS (3)
  - Off label use [Unknown]
  - Prostatic specific antigen decreased [Unknown]
  - Semen discolouration [Not Recovered/Not Resolved]

NARRATIVE: CASE EVENT DATE: 2014
